FAERS Safety Report 22243069 (Version 2)
Quarter: 2023Q2

REPORT INFORMATION
  Report Type: Spontaneous
  Country: US (occurrence: US)
  Receive Date: 20230424
  Receipt Date: 20230613
  Transmission Date: 20230722
  Serious: Yes (Other)
  Sender: FDA-Public Use
  Company Number: US-GSKCCFUS-Case-01680248_AE-94778

PATIENT

DRUGS (1)
  1. ANORO ELLIPTA [Suspect]
     Active Substance: UMECLIDINIUM BROMIDE\VILANTEROL TRIFENATATE
     Indication: Product used for unknown indication
     Dosage: UNK,62.5/25 MCG

REACTIONS (5)
  - Blindness [Unknown]
  - Oropharyngeal discomfort [Unknown]
  - Vomiting [Unknown]
  - Cough [Unknown]
  - Product complaint [Unknown]

NARRATIVE: CASE EVENT DATE: 20221215
